FAERS Safety Report 5052995-3 (Version None)
Quarter: 2006Q3

REPORT INFORMATION
  Report Type: 
  Country: None (occurrence: None)
  Receive Date: 20060712
  Receipt Date: 20060705
  Transmission Date: 20061208
  Serious: Yes (Death)
  Sender: FDA-Public Use
  Company Number: TAP2006Q01147

PATIENT
  Age: 96 Year
  Sex: Male
  Weight: 72.6 kg

DRUGS (4)
  1. LUPRON DEPOT-4 [Suspect]
     Indication: PROSTATE CANCER
     Dosage: 30 MG, EVERY 4 TO 6 MONTHS, INTRAMUSCULAR
     Route: 030
     Dates: start: 20030501, end: 20060605
  2. IRON [Concomitant]
  3. DIURETICS [Concomitant]
  4. TART CHERRY EXTRACT [Concomitant]

REACTIONS (14)
  - ABDOMINAL PAIN UPPER [None]
  - ARTHRALGIA [None]
  - ASTHENIA [None]
  - BLOOD GLUCOSE INCREASED [None]
  - CONSTIPATION [None]
  - DYSPEPSIA [None]
  - FATIGUE [None]
  - GASTRIC DISORDER [None]
  - GASTRIC ULCER PERFORATION [None]
  - HOT FLUSH [None]
  - INFLUENZA LIKE ILLNESS [None]
  - INSOMNIA [None]
  - PYREXIA [None]
  - VOMITING [None]
